FAERS Safety Report 16979917 (Version 2)
Quarter: 2019Q4

REPORT INFORMATION
  Report Type: Spontaneous
  Country: DE (occurrence: DE)
  Receive Date: 20191031
  Receipt Date: 20191104
  Transmission Date: 20200122
  Serious: Yes (Hospitalization)
  Sender: FDA-Public Use
  Company Number: NVSC2019DE018396

PATIENT
  Sex: Female

DRUGS (1)
  1. GILENYA [Suspect]
     Active Substance: FINGOLIMOD HYDROCHLORIDE
     Indication: MULTIPLE SCLEROSIS
     Dosage: UNK, QD
     Route: 065
     Dates: start: 20190402

REACTIONS (5)
  - Platelet count increased [Unknown]
  - Iron deficiency [Unknown]
  - Liver function test increased [Unknown]
  - C-reactive protein increased [Unknown]
  - Colitis [Unknown]

NARRATIVE: CASE EVENT DATE: 2019
